FAERS Safety Report 17298618 (Version 4)
Quarter: 2020Q1

REPORT INFORMATION
  Report Type: Spontaneous
  Country: AT (occurrence: AT)
  Receive Date: 20200122
  Receipt Date: 20200206
  Transmission Date: 20200409
  Serious: Yes (Hospitalization, Other)
  Sender: FDA-Public Use
  Company Number: AT-MYLANLABS-2019M1063201

PATIENT
  Age: 50 Year
  Sex: Female

DRUGS (25)
  1. LEPONEX [Suspect]
     Active Substance: CLOZAPINE
     Dosage: 100 MG, UNK (75-100 MG)
     Dates: start: 20190505
  2. PREGABALIN. [Suspect]
     Active Substance: PREGABALIN
     Dosage: 400 MILLIGRAM
     Route: 065
  3. RISPERDAL [Suspect]
     Active Substance: RISPERIDONE
     Dosage: 4 MG, UNK (2-4 MG)
     Route: 048
     Dates: start: 20190424, end: 20190521
  4. DELPRAL [Suspect]
     Active Substance: TIAPRIDE HYDROCHLORIDE
     Dosage: 200 MG, UNK
  5. LEPONEX [Suspect]
     Active Substance: CLOZAPINE
     Indication: SCHIZOPHRENIA
     Dosage: 50 MG, UNK (25-50 MG)
     Route: 065
     Dates: start: 20190423, end: 20190428
  6. PREGABALIN. [Suspect]
     Active Substance: PREGABALIN
     Dosage: 400 MILLIGRAM
     Route: 065
     Dates: start: 20190513, end: 20190513
  7. LEPONEX [Suspect]
     Active Substance: CLOZAPINE
     Dosage: 125 MILLIGRAM
     Route: 065
     Dates: start: 20190506, end: 20190506
  8. PREGABALIN. [Suspect]
     Active Substance: PREGABALIN
     Indication: PRODUCT USED FOR UNKNOWN INDICATION
     Dosage: 600 MILLIGRAM
  9. LEPONEX [Suspect]
     Active Substance: CLOZAPINE
     Dosage: UNK, 75-100 MG
     Dates: start: 20190429, end: 20190502
  10. LEPONEX [Suspect]
     Active Substance: CLOZAPINE
     Dosage: 75 MILLIGRAM
     Route: 065
     Dates: start: 20190508, end: 20190512
  11. INDERAL [Suspect]
     Active Substance: PROPRANOLOL HYDROCHLORIDE
     Indication: SCHIZOPHRENIA
     Dosage: 40 MG, UNK (30-40 MG)
     Route: 065
     Dates: start: 2018
  12. INDERAL [Suspect]
     Active Substance: PROPRANOLOL HYDROCHLORIDE
     Dosage: UNK (30-40 MG)
     Route: 065
     Dates: start: 2018, end: 20190512
  13. LEPONEX [Suspect]
     Active Substance: CLOZAPINE
     Dosage: 100 MG, UNK (75-100MG)
     Route: 065
     Dates: start: 20190429, end: 20190505
  14. LEPONEX [Suspect]
     Active Substance: CLOZAPINE
     Dosage: 100 MG, UNK (75-100 MG)
     Dates: start: 20190429, end: 20190505
  15. PREGABALIN. [Suspect]
     Active Substance: PREGABALIN
     Dosage: 400 MILLIGRAM
     Route: 065
     Dates: start: 2018, end: 20190428
  16. RISPERDAL [Suspect]
     Active Substance: RISPERIDONE
     Indication: SCHIZOPHRENIA
     Dosage: 6 MILLIGRAM
     Route: 048
     Dates: start: 2018, end: 20190423
  17. THYREX [Concomitant]
     Active Substance: LEVOTHYROXINE SODIUM
     Indication: PRODUCT USED FOR UNKNOWN INDICATION
     Dosage: 0.05 MG, UNK
     Route: 065
     Dates: start: 2014
  18. PREGABALIN. [Suspect]
     Active Substance: PREGABALIN
     Dosage: 600 MILLIGRAM
     Route: 065
     Dates: start: 20190429, end: 20190512
  19. DELPRAL [Suspect]
     Active Substance: TIAPRIDE HYDROCHLORIDE
     Indication: SCHIZOPHRENIA
     Dosage: 200 MILLIGRAM
     Route: 065
     Dates: start: 20190419, end: 20190513
  20. SEROQUEL [Suspect]
     Active Substance: QUETIAPINE FUMARATE
     Indication: PRODUCT USED FOR UNKNOWN INDICATION
     Dosage: 700 MILLIGRAM
     Route: 048
     Dates: start: 2014, end: 201905
  21. LEPONEX [Suspect]
     Active Substance: CLOZAPINE
     Dosage: UNK, 25-50 MG
     Route: 065
     Dates: start: 20190423, end: 20190428
  22. LEPONEX [Suspect]
     Active Substance: CLOZAPINE
     Dosage: 125 MILLIGRAM
     Dates: start: 20190503, end: 20190505
  23. LEPONEX [Suspect]
     Active Substance: CLOZAPINE
     Dosage: 75 MILLIGRAM
     Dates: start: 20190506, end: 20190506
  24. AKINETON [Suspect]
     Active Substance: BIPERIDEN HYDROCHLORIDE
     Indication: PRODUCT USED FOR UNKNOWN INDICATION
     Dosage: 8 MG, UNK
     Route: 065
     Dates: start: 2014, end: 20190506
  25. AGLANDIN [Suspect]
     Active Substance: TAMSULOSIN HYDROCHLORIDE
     Indication: PRODUCT USED FOR UNKNOWN INDICATION
     Dosage: 0.4 MG, UNK
     Route: 065
     Dates: start: 2014

REACTIONS (3)
  - Pneumonia [Unknown]
  - Delirium [Recovered/Resolved]
  - Dyskinesia [Recovering/Resolving]

NARRATIVE: CASE EVENT DATE: 20190505
